FAERS Safety Report 22097909 (Version 1)
Quarter: 2023Q1

REPORT INFORMATION
  Report Type: Spontaneous
  Country: US (occurrence: None)
  Receive Date: 20230314
  Receipt Date: 20230314
  Transmission Date: 20230417
  Serious: Yes (Death, Hospitalization, Other)
  Sender: FDA-Public Use
  Company Number: None

PATIENT
  Age: 80 Year
  Sex: Female
  Weight: 70.3 kg

DRUGS (3)
  1. ATEZOLIZUMAB [Suspect]
     Active Substance: ATEZOLIZUMAB
     Indication: Small cell lung cancer extensive stage
     Dosage: OTHER FREQUENCY : ONCE;?
     Route: 040
     Dates: start: 20230310, end: 20230310
  2. FILGRASTIM [Suspect]
     Active Substance: FILGRASTIM
     Indication: Febrile neutropenia
     Dosage: FREQUENCY : DAILY;?
     Route: 058
     Dates: start: 20230304
  3. FILGRASTIM [Suspect]
     Active Substance: FILGRASTIM
     Indication: Prophylaxis

REACTIONS (8)
  - Chest discomfort [None]
  - Unresponsive to stimuli [None]
  - Dyspnoea [None]
  - Cardiac arrest [None]
  - Apnoea [None]
  - Bradycardia [None]
  - Pulse absent [None]
  - Cardio-respiratory arrest [None]

NARRATIVE: CASE EVENT DATE: 20230310
